FAERS Safety Report 17774406 (Version 1)
Quarter: 2020Q2

REPORT INFORMATION
  Report Type: Spontaneous
  Country: TR (occurrence: TR)
  Receive Date: 20200513
  Receipt Date: 20200513
  Transmission Date: 20200714
  Serious: Yes (Death)
  Sender: FDA-Public Use
  Company Number: NVSC2020TR129174

PATIENT
  Age: 56 Year
  Sex: Male

DRUGS (1)
  1. CIPROFLOXACIN. [Suspect]
     Active Substance: CIPROFLOXACIN
     Indication: FEBRILE NEUTROPENIA
     Dosage: UNK
     Route: 065

REACTIONS (2)
  - Respiratory failure [Fatal]
  - Sphingomonas paucimobilis infection [Fatal]
